FAERS Safety Report 6302411-6 (Version None)
Quarter: 2009Q3

REPORT INFORMATION
  Report Type: 
  Country: None (occurrence: None)
  Receive Date: 20090810
  Receipt Date: 20090731
  Transmission Date: 20100115
  Serious: Yes (Other)
  Sender: FDA-Public Use
  Company Number: US-ELI_LILLY_AND_COMPANY-US200908000648

PATIENT
  Sex: Female
  Weight: 72.57 kg

DRUGS (10)
  1. PRASUGREL HYDROCHLORIDE [Suspect]
     Indication: ACUTE CORONARY SYNDROME
     Dates: start: 20090617
  2. ASPIRIN [Concomitant]
     Indication: PROPHYLAXIS
     Dosage: 325 MG, DAILY (1/D)
     Dates: start: 20090412, end: 20090618
  3. ASPIRIN [Concomitant]
     Dosage: 81 MG, DAILY (1/D)
     Dates: start: 20090619
  4. CYMBALTA [Concomitant]
     Indication: PROPHYLAXIS
     Dates: start: 20090601
  5. SIMVASTATIN [Concomitant]
     Indication: HYPERLIPIDAEMIA
     Dates: start: 20051017
  6. SINGULAIR [Concomitant]
     Indication: ASTHMA
     Dates: start: 20090101
  7. SYMBICORT [Concomitant]
     Indication: PROPHYLAXIS
     Dates: start: 20090614
  8. ZESTORETIC [Concomitant]
     Indication: PROPHYLAXIS
     Dates: start: 20080414
  9. METOPROLOL TARTRATE [Concomitant]
     Indication: HYPERTENSION
     Dates: start: 20080414
  10. IMDUR [Concomitant]
     Indication: PROPHYLAXIS
     Dates: start: 20090614

REACTIONS (1)
  - DIFFERENTIAL WHITE BLOOD CELL COUNT ABNORMAL [None]
